FAERS Safety Report 18044441 (Version 1)
Quarter: 2020Q3

REPORT INFORMATION
  Report Type: Spontaneous
  Country: US (occurrence: US)
  Receive Date: 20200720
  Receipt Date: 20200720
  Transmission Date: 20201103
  Serious: Yes (Life-Threatening, Hospitalization, Disabling)
  Sender: FDA-Public Use
  Company Number: None

PATIENT
  Age: 18 Year

DRUGS (2)
  1. NEXPLANON [Suspect]
     Active Substance: ETONOGESTREL
     Indication: CONTRACEPTION
     Dates: start: 20130808, end: 20151218
  2. NEXPLANON [Suspect]
     Active Substance: ETONOGESTREL
     Indication: PROPHYLAXIS
     Dates: start: 20130808, end: 20151218

REACTIONS (7)
  - Weight decreased [None]
  - Temperature regulation disorder [None]
  - Nausea [None]
  - Vomiting [None]
  - Blood glucose decreased [None]
  - Hypothermia [None]
  - Emergency care [None]

NARRATIVE: CASE EVENT DATE: 20130814
